FAERS Safety Report 6039214-6 (Version None)
Quarter: 2009Q1

REPORT INFORMATION
  Report Type: 
  Country: None (occurrence: None)
  Receive Date: 20090115
  Receipt Date: 20090105
  Transmission Date: 20090719
  Serious: Yes (Hospitalization, Other)
  Sender: FDA-Public Use
  Company Number: ES-B.I. PHARMACEUTICALS,INC./RIDGEFIELD-2009-ES-00001SC

PATIENT
  Age: 60 Year
  Sex: Male

DRUGS (3)
  1. MELOXICAM [Suspect]
     Indication: OSTEOARTHRITIS
     Dosage: 15MG
     Route: 048
     Dates: start: 20041001
  2. ADOLONTA RETARD [Concomitant]
     Indication: OSTEOARTHRITIS
     Dosage: 150MG
     Route: 048
     Dates: start: 20030101
  3. VIOXX [Concomitant]
     Indication: OSTEOARTHRITIS
     Dosage: 25MG
     Route: 048
     Dates: start: 20040701, end: 20040901

REACTIONS (1)
  - ISCHAEMIC CEREBRAL INFARCTION [None]
